FAERS Safety Report 24464850 (Version 1)
Quarter: 2024Q4

REPORT INFORMATION
  Report Type: Report from Study
  Country: US (occurrence: US)
  Receive Date: 20241018
  Receipt Date: 20241018
  Transmission Date: 20250115
  Serious: No
  Sender: ROCHE
  Company Number: US-ROCHE-3514563

PATIENT
  Sex: Male

DRUGS (1)
  1. XOLAIR [Suspect]
     Active Substance: OMALIZUMAB
     Indication: Product used for unknown indication
     Route: 065

REACTIONS (6)
  - Mental status changes [Unknown]
  - Asthma [Unknown]
  - Hypertension [Unknown]
  - Insomnia [Unknown]
  - Pericardial effusion [Unknown]
  - Seizure [Unknown]
